FAERS Safety Report 4773947-4 (Version None)
Quarter: 2005Q3

REPORT INFORMATION
  Report Type: 
  Country: None (occurrence: None)
  Receive Date: 20050920
  Receipt Date: 20050909
  Transmission Date: 20060218
  Serious: Yes (Other)
  Sender: FDA-Public Use
  Company Number: 200513010FR

PATIENT
  Age: 51 Year
  Sex: Female

DRUGS (2)
  1. NASACORT [Suspect]
     Route: 045
     Dates: start: 20050102, end: 20050706
  2. DETURGYLONE [Concomitant]
     Route: 045

REACTIONS (1)
  - HYPERTENSION [None]
